FAERS Safety Report 8491023-4 (Version None)
Quarter: 2012Q3

REPORT INFORMATION
  Report Type: 
  Country: None (occurrence: None)
  Receive Date: 20120706
  Receipt Date: 20120702
  Transmission Date: 20120928
  Serious: Yes (Hospitalization)
  Sender: FDA-Public Use
  Company Number: US-BAYER-2011-072720

PATIENT
  Age: 20 Year
  Sex: Female
  Weight: 81.633 kg

DRUGS (5)
  1. YASMIN [Suspect]
     Indication: CONTRACEPTION
     Dosage: UNK
     Route: 048
     Dates: start: 20050301, end: 20050901
  2. YAZ [Suspect]
     Indication: CONTRACEPTION
     Dosage: UNK
     Route: 048
     Dates: start: 20050301, end: 20050901
  3. PAXIL [Concomitant]
     Indication: DEPRESSION
     Dosage: 40 MG, 1 DAILY
  4. ALBUTEROL [Concomitant]
     Indication: ASTHMA
  5. PROTONIX [Concomitant]
     Dosage: 40 MG,1 DAILY

REACTIONS (2)
  - CHOLECYSTITIS [None]
  - CHOLECYSTITIS CHRONIC [None]
